FAERS Safety Report 7844926-5 (Version None)
Quarter: 2011Q4

REPORT INFORMATION
  Report Type: 
  Country: None (occurrence: None)
  Receive Date: 20111025
  Receipt Date: 20111012
  Transmission Date: 20120403
  Serious: Yes (Hospitalization, Other)
  Sender: FDA-Public Use
  Company Number: US-BAYER-2011-011903

PATIENT
  Age: 36 Year
  Sex: Female
  Weight: 50 kg

DRUGS (23)
  1. BACTRIM [Concomitant]
     Indication: URINARY TRACT INFECTION
     Dosage: 800 / 160 MG, 2 TABLETS PER DAY
     Dates: start: 20070110, end: 20070112
  2. EFFEXOR [Concomitant]
     Indication: ANXIETY
     Dosage: UNK
     Dates: start: 20020201
  3. EFFEXOR [Concomitant]
     Indication: DEPRESSION
     Dosage: UNK
     Dates: start: 20000301
  4. ZOLOFT [Concomitant]
     Indication: ANXIETY
     Dosage: UNK
     Dates: start: 20010101
  5. ZANAFLEX [Concomitant]
     Indication: MUSCLE SPASMS
     Dosage: 4 MG, 2 TABLETS, QD
     Dates: start: 20061224, end: 20070113
  6. IBUPROFEN [Concomitant]
     Dosage: UNK
     Dates: start: 20071017, end: 20071021
  7. MEDROXYPROGESTERONE [Concomitant]
     Indication: MENSTRUATION IRREGULAR
     Dosage: UNK
     Dates: start: 20070401, end: 20080101
  8. SONATA [Concomitant]
     Indication: MUSCLE SPASMS
     Dosage: 10 MG, 2 TABLETS, HS
     Dates: start: 20061224, end: 20070113
  9. DIFLUCAN [Concomitant]
     Indication: URINARY TRACT INFECTION
     Dosage: 150 MG, QD
     Dates: start: 20070108
  10. VALTREX [Concomitant]
     Indication: ANTIVIRAL TREATMENT
     Dosage: 1 G, BID
     Dates: start: 20070110, end: 20070113
  11. YASMIN [Suspect]
     Indication: CONTRACEPTION
     Dosage: UNK
     Route: 048
     Dates: start: 20031101, end: 20080101
  12. POTASSIUM [Concomitant]
     Dosage: UNK
     Dates: start: 20070101
  13. AMBIEN [Concomitant]
     Dosage: UNK
     Dates: start: 20060101, end: 20070101
  14. ZOLOFT [Concomitant]
     Indication: DEPRESSION
  15. OMACOR [Concomitant]
     Indication: BLOOD CHOLESTEROL INCREASED
     Dosage: 1 G, QD
     Dates: start: 20061024, end: 20061227
  16. CELEBREX [Concomitant]
     Indication: PAIN
     Dosage: 200 MG, QD
     Dates: start: 20061224, end: 20070113
  17. AMITRIPTYLINE HCL [Concomitant]
     Indication: PAIN
     Dosage: 50 MG, QD
     Dates: start: 20061224, end: 20070116
  18. AMBIEN [Concomitant]
     Indication: INSOMNIA
     Dosage: UNK
     Dates: start: 20000101, end: 20010101
  19. SONATA [Concomitant]
     Dosage: UNK
  20. CLINDAMYCIN [Concomitant]
     Dosage: UNK
     Dates: start: 20070101
  21. YASMIN [Suspect]
     Indication: PREMENSTRUAL SYNDROME
  22. LEVAQUIN [Concomitant]
     Indication: ANTIBIOTIC THERAPY
     Dosage: 500 MG, QD
     Dates: start: 20070112, end: 20070113
  23. SKELAXIN [Concomitant]
     Indication: MUSCLE SPASMS
     Dosage: 800 MG, 2 TABLETS, QD
     Dates: start: 20061224, end: 20070113

REACTIONS (24)
  - ASTHENIA [None]
  - LOSS OF CONSCIOUSNESS [None]
  - FEAR [None]
  - DIZZINESS [None]
  - ANXIETY [None]
  - AMNESIA [None]
  - CEREBROVASCULAR ACCIDENT [None]
  - PAIN [None]
  - DIARRHOEA [None]
  - COGNITIVE DISORDER [None]
  - DEAFNESS UNILATERAL [None]
  - MALAISE [None]
  - DYSPHAGIA [None]
  - HEMIPARESIS [None]
  - FATIGUE [None]
  - BALANCE DISORDER [None]
  - CONVULSION [None]
  - EMOTIONAL DISTRESS [None]
  - NAUSEA [None]
  - BLINDNESS UNILATERAL [None]
  - VERTIGO [None]
  - HEADACHE [None]
  - SPEECH DISORDER [None]
  - EYE MOVEMENT DISORDER [None]
